FAERS Safety Report 20690507 (Version 1)
Quarter: 2022Q2

REPORT INFORMATION
  Report Type: Spontaneous
  Country: PK (occurrence: PK)
  Receive Date: 20220408
  Receipt Date: 20220408
  Transmission Date: 20220720
  Serious: Yes (Other)
  Sender: FDA-Public Use
  Company Number: PK-MEDICUREINC-2022PKLIT00007

PATIENT
  Age: 50 Year
  Sex: Male

DRUGS (2)
  1. AGGRASTAT [Suspect]
     Active Substance: TIROFIBAN HYDROCHLORIDE
     Indication: Antiplatelet therapy
  2. ADRENALIN [Suspect]
     Active Substance: EPINEPHRINE
     Indication: Acute myocardial infarction

REACTIONS (1)
  - Ventricular tachycardia [Recovered/Resolved]
